FAERS Safety Report 20552467 (Version 1)
Quarter: 2022Q1

REPORT INFORMATION
  Report Type: Spontaneous
  Country: US (occurrence: US)
  Receive Date: 20220304
  Receipt Date: 20220304
  Transmission Date: 20220423
  Serious: Yes (Hospitalization, Other)
  Sender: FDA-Public Use
  Company Number: US-TORRENT-00011763

PATIENT
  Age: 49 Year
  Sex: Male
  Weight: 62 kg

DRUGS (1)
  1. LEVETIRACETAM [Suspect]
     Active Substance: LEVETIRACETAM
     Indication: Product used for unknown indication
     Dosage: (358 MG/KG)
     Route: 048

REACTIONS (5)
  - Overdose [Unknown]
  - Withdrawal syndrome [Recovered/Resolved]
  - Blood urea abnormal [Recovered/Resolved]
  - Carbon dioxide decreased [Recovered/Resolved]
  - Suicide attempt [Unknown]
